FAERS Safety Report 24372844 (Version 1)
Quarter: 2024Q3

REPORT INFORMATION
  Report Type: Spontaneous
  Country: GB (occurrence: GB)
  Receive Date: 20240927
  Receipt Date: 20240927
  Transmission Date: 20241016
  Serious: Yes (Other)
  Sender: TEVA
  Company Number: GB-MHRA-TPP18273625C13543647YC1726823179040

PATIENT
  Age: 78 Year
  Sex: Female
  Weight: 103 kg

DRUGS (12)
  1. PREDNISOLONE [Suspect]
     Active Substance: PREDNISOLONE
     Indication: Ill-defined disorder
     Dosage: TPP YC - PLEASE RECLASSIFY
     Route: 065
     Dates: start: 20240920
  2. DOXAZOSIN [Concomitant]
     Active Substance: DOXAZOSIN MESYLATE
     Indication: Ill-defined disorder
     Dosage: TPP YC - PLEASE RECLASSIFY
     Dates: start: 20230125
  3. ATORVASTATIN [Concomitant]
     Active Substance: ATORVASTATIN
     Indication: Ill-defined disorder
     Dosage: TPP YC - PLEASE RECLASSIFY
     Dates: start: 20230125
  4. DICLOFENAC DIETHYLAMINE [Concomitant]
     Active Substance: DICLOFENAC DIETHYLAMINE
     Indication: Ill-defined disorder
     Dosage: APPLY TWICE DAILY AS REQUIRED, TPP YC - PLEASE RECLASSIFY
     Dates: start: 20240906, end: 20240920
  5. CARBOXYMETHYLCELLULOSE [Concomitant]
     Active Substance: CARBOXYMETHYLCELLULOSE
     Indication: Ill-defined disorder
     Dosage: 1 DROP BOTH EYES FOUR TIMES A DAY, TPP YC - PLEASE RECLASSIFY,8 DOSAGE FORMS DAILY
     Route: 047
     Dates: start: 20221024
  6. ATENOLOL [Concomitant]
     Active Substance: ATENOLOL
     Indication: Ill-defined disorder
     Dosage: TPP YC - PLEASE RECLASSIFY
     Dates: start: 20230125
  7. CANDESARTAN [Concomitant]
     Active Substance: CANDESARTAN
     Indication: Ill-defined disorder
     Dosage: TPP YC - PLEASE RECLASSIFY
     Dates: start: 20230125
  8. PREDNISOLONE [Concomitant]
     Active Substance: PREDNISOLONE
     Indication: Ill-defined disorder
     Dosage: EACH MORNING WITH FOOD, FOR 4 WEEKS
     Dates: start: 20240906
  9. INDAPAMIDE [Concomitant]
     Active Substance: INDAPAMIDE
     Indication: Ill-defined disorder
     Dosage: MORNING, TPP YC - PLEASE RECLASSIFY
     Dates: start: 20230125
  10. OMEPRAZOLE [Concomitant]
     Active Substance: OMEPRAZOLE
     Indication: Ill-defined disorder
     Dosage: TPP YC - PLEASE RECLASSIFY
     Dates: start: 20240906
  11. AMITRIPTYLINE HYDROCHLORIDE [Concomitant]
     Active Substance: AMITRIPTYLINE HYDROCHLORIDE
     Indication: Ill-defined disorder
     Dosage: NIGHT, TPP YC - PLEASE RECLASSIFY
     Dates: start: 20240703
  12. ADCAL [Concomitant]
     Indication: Ill-defined disorder
     Dosage: TPP YC - PLEASE RECLASSIFY
     Dates: start: 20230125

REACTIONS (2)
  - Nausea [Recovered/Resolved]
  - Hyperhidrosis [Recovered/Resolved]

NARRATIVE: CASE EVENT DATE: 20240920
